FAERS Safety Report 21156159 (Version 1)
Quarter: 2022Q3

REPORT INFORMATION
  Report Type: Spontaneous
  Country: US (occurrence: None)
  Receive Date: 20220731
  Receipt Date: 20220731
  Transmission Date: 20221026
  Serious: Yes (unspecified)
  Sender: FDA-Public Use
  Company Number: None

PATIENT
  Age: 64 Year
  Sex: Female
  Weight: 59.4 kg

DRUGS (1)
  1. MAGNESIUM CITRATE SALINE LAXATIVE [Suspect]
     Active Substance: MAGNESIUM CITRATE
     Indication: Colonoscopy

REACTIONS (3)
  - Heart rate decreased [None]
  - Abdominal pain upper [None]
  - Nausea [None]

NARRATIVE: CASE EVENT DATE: 20220721
